FAERS Safety Report 8027909-4 (Version None)
Quarter: 2011Q4

REPORT INFORMATION
  Report Type: 
  Country: None (occurrence: None)
  Receive Date: 20111130
  Receipt Date: 20110811
  Transmission Date: 20120403
  Serious: Yes (Other)
  Sender: FDA-Public Use
  Company Number: US200903003338

PATIENT
  Sex: Female

DRUGS (15)
  1. AMITRIPTYLINE HCL [Concomitant]
  2. BYETTA [Suspect]
     Dosage: 5 UG, BID ; 10 UG, BID
     Dates: start: 20060522
  3. BYETTA [Suspect]
     Dosage: 5 UG, BID ; 10 UG, BID
     Dates: end: 20071025
  4. EXENATIDE UNK STRENGTH PEN, DISPOSABLE DEVICE (EXENATIDE PEN (UNKNOWN [Concomitant]
  5. BENICAR HCT [Concomitant]
  6. GLUCOPHAGE [Concomitant]
  7. VYTORIN [Concomitant]
  8. NABUMETONE [Concomitant]
  9. METAGLIP (GLIPIZIDE, METFORMIN HYDROCHLORIDE) [Concomitant]
  10. CELEBREX [Concomitant]
  11. VIVELEL (ESTRADIOL) [Concomitant]
  12. PROVERA [Concomitant]
  13. ETODOLAC [Concomitant]
  14. ULTRAM (TRMADOL HYDROCHLORIDE) [Concomitant]
  15. ASPIRIN [Concomitant]

REACTIONS (3)
  - PANCREATITIS [None]
  - RENAL INJURY [None]
  - EMOTIONAL DISTRESS [None]
